FAERS Safety Report 8244093-2 (Version None)
Quarter: 2012Q1

REPORT INFORMATION
  Report Type: 
  Country: None (occurrence: None)
  Receive Date: 20120329
  Receipt Date: 20120320
  Transmission Date: 20120608
  Serious: Yes (Hospitalization, Other)
  Sender: FDA-Public Use
  Company Number: US-BRISTOL-MYERS SQUIBB COMPANY-16465577

PATIENT
  Sex: Female

DRUGS (1)
  1. ERBITUX [Suspect]
     Indication: COLORECTAL CANCER
     Dosage: LAST TREATMENT WAS ON 8MAR12

REACTIONS (5)
  - RASH [None]
  - CYSTITIS [None]
  - ASCITES [None]
  - ABDOMINAL PAIN [None]
  - BACK PAIN [None]
